FAERS Safety Report 10373900 (Version 1)
Quarter: 2014Q1

REPORT INFORMATION
  Report Type: Spontaneous
  Country: US (occurrence: None)
  Receive Date: 20140306
  Receipt Date: 20140306
  Transmission Date: 20141002
  Serious: Yes (Hospitalization)
  Sender: FDA-Public Use
  Company Number: 163-21880-13010618

PATIENT
  Age: 75 Year
  Sex: Male

DRUGS (9)
  1. REVLIMID [Suspect]
     Indication: PLASMA CELL MYELOMA
     Dosage: 5 MG, 28 IN 28 D, PO
     Route: 048
     Dates: start: 20121204
  2. CALCITRATE (CALCIUM) [Concomitant]
  3. CARVEDILOL [Concomitant]
  4. DEXAMETHASONE [Concomitant]
  5. LASIX (FUROSEMIDE) [Concomitant]
  6. LOSARTAN POTASSIUM [Concomitant]
  7. NIFEDICAL XL (NIFEDIPINE) [Concomitant]
  8. PANTOPRAZOLE SODIUM [Concomitant]
  9. PLAVIX (CLOPIDOGREL SULFATE) [Concomitant]

REACTIONS (1)
  - Full blood count decreased [None]
